FAERS Safety Report 6984604-8 (Version None)
Quarter: 2010Q3

REPORT INFORMATION
  Report Type: 
  Country: None (occurrence: None)
  Receive Date: 20100915
  Receipt Date: 20100903
  Transmission Date: 20110219
  Serious: Yes (Other)
  Sender: FDA-Public Use
  Company Number: DE-PFIZER INC-2010111602

PATIENT
  Age: 43 Year
  Sex: Female

DRUGS (4)
  1. SOMAVERT [Suspect]
     Dosage: UNK
     Dates: start: 20090101
  2. ROCALTROL [Concomitant]
     Dosage: UNK
  3. CALCIUM [Concomitant]
     Dosage: UNK
  4. LEVOTHYROXINE SODIUM [Concomitant]
     Dosage: UNK

REACTIONS (1)
  - AMNESIA [None]
